FAERS Safety Report 19734138 (Version 1)
Quarter: 2021Q3

REPORT INFORMATION
  Report Type: Spontaneous
  Country: BE (occurrence: BE)
  Receive Date: 20210824
  Receipt Date: 20210824
  Transmission Date: 20211014
  Serious: Yes (Other)
  Sender: FDA-Public Use
  Company Number: BE-ROCHE-2894546

PATIENT
  Sex: Female

DRUGS (1)
  1. ALECTINIB. [Suspect]
     Active Substance: ALECTINIB
     Indication: NON-SMALL CELL LUNG CANCER
     Route: 065

REACTIONS (34)
  - Fatigue [Unknown]
  - Oesophageal discomfort [Unknown]
  - Blood creatine phosphokinase increased [Unknown]
  - Photosensitivity reaction [Unknown]
  - Dizziness [Unknown]
  - Alopecia [Unknown]
  - Tendon disorder [Unknown]
  - Oedema [Unknown]
  - Diarrhoea [Unknown]
  - Blood potassium decreased [Unknown]
  - Memory impairment [Unknown]
  - Appetite disorder [Unknown]
  - Constipation [Unknown]
  - Blood glucose increased [Unknown]
  - Abdominal distension [Unknown]
  - Hypoaesthesia [Unknown]
  - Anaemia [Unknown]
  - Nausea [Unknown]
  - Dyspepsia [Unknown]
  - Hepatic enzyme increased [Unknown]
  - Blood alkaline phosphatase increased [Unknown]
  - Heart rate decreased [Unknown]
  - Blood testosterone decreased [Unknown]
  - Ligament pain [Unknown]
  - Vomiting [Unknown]
  - Hypotension [Unknown]
  - Taste disorder [Unknown]
  - Myalgia [Unknown]
  - Weight increased [Unknown]
  - Wheezing [Unknown]
  - Headache [Unknown]
  - Skin wrinkling [Unknown]
  - Dyspnoea [Unknown]
  - Paraesthesia [Unknown]
